FAERS Safety Report 6707460-1 (Version None)
Quarter: 2010Q2

REPORT INFORMATION
  Report Type: 
  Country: None (occurrence: None)
  Receive Date: 20100503
  Receipt Date: 20090415
  Transmission Date: 20101027
  Serious: No
  Sender: FDA-Public Use
  Company Number: US-ASTRAZENECA-2009UW09501

PATIENT
  Age: 59 Year
  Sex: Female
  Weight: 54.4 kg

DRUGS (3)
  1. NEXIUM [Suspect]
     Indication: OESOPHAGITIS
     Route: 048
     Dates: start: 20090215
  2. RED YEAST RICE [Concomitant]
  3. VITAMINS [Concomitant]

REACTIONS (1)
  - BREAST CALCIFICATIONS [None]
